FAERS Safety Report 6128199-X (Version None)
Quarter: 2009Q1

REPORT INFORMATION
  Report Type: 
  Country: None (occurrence: None)
  Receive Date: 20090323
  Receipt Date: 20090311
  Transmission Date: 20090719
  Serious: Yes (Other)
  Sender: FDA-Public Use
  Company Number: JP-ROCHE-622246

PATIENT
  Sex: Female
  Weight: 20 kg

DRUGS (7)
  1. TAMIFLU [Suspect]
     Indication: INFLUENZA
     Route: 048
     Dates: start: 20090306, end: 20090309
  2. ASPIRIN [Concomitant]
     Route: 048
  3. MUCODYNE [Concomitant]
     Route: 048
  4. MIYA BM [Concomitant]
     Route: 048
  5. CELTECT [Concomitant]
     Route: 048
  6. MAGNESIUM OXIDE [Concomitant]
     Route: 048
  7. POLYCARBOPHIL CALCIUM [Concomitant]
     Dosage: DRUG NAME: COLONEL
     Route: 048

REACTIONS (1)
  - ABNORMAL BEHAVIOUR [None]
